FAERS Safety Report 4424517-9 (Version None)
Quarter: 2004Q3

REPORT INFORMATION
  Report Type: 
  Country: None (occurrence: None)
  Receive Date: 20040812
  Receipt Date: 20040805
  Transmission Date: 20050211
  Serious: Yes (Hospitalization)
  Sender: FDA-Public Use
  Company Number: FR-ROCHE-376756

PATIENT
  Age: 49 Year
  Sex: Male

DRUGS (2)
  1. ROCEPHIN [Suspect]
     Indication: SKIN INFECTION
     Dosage: FORMULATION: LYOPHILISED.
     Route: 042
     Dates: start: 20040503, end: 20040510
  2. PYOSTACINE [Suspect]
     Indication: SKIN INFECTION
     Route: 048
     Dates: start: 20040506, end: 20040511

REACTIONS (1)
  - CUTANEOUS VASCULITIS [None]
